FAERS Safety Report 6510076-3 (Version None)
Quarter: 2009Q4

REPORT INFORMATION
  Report Type: 
  Country: None (occurrence: None)
  Receive Date: 20091217
  Receipt Date: 20091207
  Transmission Date: 20100525
  Serious: Yes (Hospitalization)
  Sender: FDA-Public Use
  Company Number: 2008-1740

PATIENT
  Age: 3 Year
  Sex: Male

DRUGS (2)
  1. INCRELEX [Suspect]
     Indication: BLOOD GROWTH HORMONE ABNORMAL
     Dosage: 0.8 MG (0.4 MG, 2 IN 1 D), SUBCUTANEOUS
     Route: 058
     Dates: start: 20081104, end: 20081110
  2. VALPROATE SODIUM [Concomitant]

REACTIONS (2)
  - ACCIDENTAL OVERDOSE [None]
  - HYPOGLYCAEMIA [None]
